FAERS Safety Report 6191786-7 (Version None)
Quarter: 2009Q2

REPORT INFORMATION
  Report Type: 
  Country: None (occurrence: None)
  Receive Date: 20090515
  Receipt Date: 20090513
  Transmission Date: 20091009
  Serious: Yes (Death, Other)
  Sender: FDA-Public Use
  Company Number: PHHY2009GB18594

PATIENT
  Sex: Female

DRUGS (3)
  1. CLOZARIL [Suspect]
     Indication: SCHIZOPHRENIA
     Dosage: UNK
     Dates: start: 20050819
  2. VENLAFAXINE HCL [Concomitant]
     Dosage: UNK
  3. VALPROATE SODIUM [Concomitant]

REACTIONS (2)
  - CONVULSION [None]
  - DEATH [None]
